FAERS Safety Report 4359177-9 (Version None)
Quarter: 2004Q2

REPORT INFORMATION
  Report Type: 
  Country: None (occurrence: None)
  Receive Date: 20040512
  Receipt Date: 20040426
  Transmission Date: 20050107
  Serious: Yes (Hospitalization)
  Sender: FDA-Public Use
  Company Number: 2004AP02265

PATIENT
  Age: 33 Year
  Sex: Female
  Weight: 48 kg

DRUGS (8)
  1. OMEPRAZOLE [Suspect]
     Indication: PANCREATITIS CHRONIC
     Dosage: 10 MG DAILY PO
     Route: 048
     Dates: start: 20040329, end: 20040405
  2. FOIPAN [Suspect]
     Indication: PANCREATITIS CHRONIC
     Dosage: 300 MG DAILY PO
     Route: 048
     Dates: start: 20040328, end: 20040408
  3. SUPACAL [Suspect]
     Indication: PANCREATITIS CHRONIC
     Dosage: 120 MG DAILY PO
     Route: 048
     Dates: start: 20040328, end: 20040408
  4. FELTASE [Suspect]
     Indication: PANCREATITIS CHRONIC
     Dosage: 3 DF DAILY PO
     Route: 048
     Dates: start: 20040328, end: 20040408
  5. BETAMAC [Suspect]
     Indication: PANIC DISORDER
     Dosage: 50 MG DAILY PO
     Route: 048
     Dates: end: 20040406
  6. CONSTAN [Suspect]
     Indication: PANIC DISORDER
     Dosage: 0.8 MG DAILY PO
     Route: 048
     Dates: end: 20040406
  7. DEPAS [Concomitant]
  8. RELPAX [Concomitant]

REACTIONS (1)
  - RHABDOMYOLYSIS [None]
